FAERS Safety Report 6047903-2 (Version None)
Quarter: 2009Q1

REPORT INFORMATION
  Report Type: 
  Country: None (occurrence: None)
  Receive Date: 20090123
  Receipt Date: 20090112
  Transmission Date: 20090719
  Serious: Yes (Hospitalization)
  Sender: FDA-Public Use
  Company Number: US-BIOGENIDEC-2008BI027579

PATIENT
  Age: 66 Year
  Sex: Female
  Weight: 86 kg

DRUGS (25)
  1. AVONEX [Suspect]
     Indication: MULTIPLE SCLEROSIS
     Route: 030
     Dates: start: 20030801, end: 20050101
  2. AVONEX [Suspect]
     Route: 030
     Dates: start: 20050101
  3. AVONEX [Suspect]
     Route: 030
     Dates: start: 19990801
  4. AVONEX [Suspect]
     Route: 030
     Dates: start: 19991001, end: 20030701
  5. CELEBREX [Concomitant]
     Indication: DRUG USE FOR UNKNOWN INDICATION
     Route: 048
  6. CELEXA [Concomitant]
     Indication: DRUG USE FOR UNKNOWN INDICATION
  7. NEURONTIN [Concomitant]
     Indication: DRUG USE FOR UNKNOWN INDICATION
  8. PRILOSEC [Concomitant]
     Indication: DRUG USE FOR UNKNOWN INDICATION
     Route: 048
  9. NITROSTAT [Concomitant]
     Indication: DRUG USE FOR UNKNOWN INDICATION
     Route: 060
  10. NORTRIPTYLINE HCL [Concomitant]
     Indication: DRUG USE FOR UNKNOWN INDICATION
  11. NORTRIPTYLINE HCL [Concomitant]
  12. MECLIZINE HCL [Concomitant]
     Indication: DRUG USE FOR UNKNOWN INDICATION
  13. LOVASTATIN [Concomitant]
     Indication: DRUG USE FOR UNKNOWN INDICATION
  14. LISINOPRIL [Concomitant]
     Indication: DRUG USE FOR UNKNOWN INDICATION
  15. SKELAXIN [Concomitant]
     Indication: DRUG USE FOR UNKNOWN INDICATION
  16. SYSTANE [Concomitant]
     Indication: DRUG USE FOR UNKNOWN INDICATION
  17. DUONEB [Concomitant]
     Indication: DRUG USE FOR UNKNOWN INDICATION
     Route: 055
  18. COREG CR [Concomitant]
     Indication: DRUG USE FOR UNKNOWN INDICATION
     Route: 048
  19. FUROSEMIDE [Concomitant]
     Indication: DRUG USE FOR UNKNOWN INDICATION
     Route: 048
  20. METHIMAZOLE [Concomitant]
     Indication: DRUG USE FOR UNKNOWN INDICATION
  21. OXYGEN [Concomitant]
     Indication: DRUG USE FOR UNKNOWN INDICATION
     Route: 045
  22. HYDROCHLOROTHIAZIDE [Concomitant]
     Indication: DRUG USE FOR UNKNOWN INDICATION
  23. HYDROCODONE WITH ACETAMINOPHEN 10/500 [Concomitant]
     Indication: DRUG USE FOR UNKNOWN INDICATION
  24. NAPROSYN [Concomitant]
     Indication: DRUG USE FOR UNKNOWN INDICATION
  25. IBUPROFEN [Concomitant]
     Indication: DRUG USE FOR UNKNOWN INDICATION

REACTIONS (6)
  - CARDIAC DISORDER [None]
  - DIZZINESS [None]
  - ECCHYMOSIS [None]
  - HEADACHE [None]
  - INFLUENZA LIKE ILLNESS [None]
  - NASOPHARYNGITIS [None]
